FAERS Safety Report 5157939-1 (Version None)
Quarter: 2006Q4

REPORT INFORMATION
  Report Type: 
  Country: None (occurrence: None)
  Receive Date: 20061116
  Receipt Date: 20061103
  Transmission Date: 20070319
  Serious: Yes (Disabling, Other)
  Sender: FDA-Public Use
  Company Number: 2006135867

PATIENT
  Age: 56 Year
  Sex: Male

DRUGS (9)
  1. VIAGRA [Suspect]
     Indication: ERECTILE DYSFUNCTION
     Dosage: 25 MG (25 MG, 1 IN 1 WK)
     Dates: start: 20040101, end: 20050101
  2. TOPROL-XL [Concomitant]
  3. QUINAPRIL [Concomitant]
  4. LIPITOR [Concomitant]
  5. PREDNISOLONE ACETATE [Concomitant]
  6. ASPIRIN [Concomitant]
  7. VITAMIN C (VITAMIN C) [Concomitant]
  8. VITAMIN E [Concomitant]
  9. ALCOHOL (ETHANOL) [Concomitant]

REACTIONS (6)
  - ALCOHOL USE [None]
  - CORNEAL TRANSPLANT [None]
  - ECONOMIC PROBLEM [None]
  - IMPAIRED WORK ABILITY [None]
  - MEMORY IMPAIRMENT [None]
  - OPTIC ISCHAEMIC NEUROPATHY [None]
